FAERS Safety Report 14102620 (Version 1)
Quarter: 2017Q4

REPORT INFORMATION
  Report Type: Spontaneous
  Country: US (occurrence: US)
  Receive Date: 20171018
  Receipt Date: 20171018
  Transmission Date: 20180321
  Serious: No
  Sender: FDA-Public Use
  Company Number: US-ENDO PHARMACEUTICALS INC-2017-000496

PATIENT
  Age: 72 Year
  Sex: Female

DRUGS (2)
  1. VALSTAR [Suspect]
     Active Substance: VALRUBICIN
     Indication: BLADDER CANCER
     Dosage: SECOND INSTILLATION
     Route: 043
     Dates: start: 201701
  2. VALSTAR [Suspect]
     Active Substance: VALRUBICIN
     Indication: METASTATIC NEOPLASM
     Dosage: FIRST INSTILLATION
     Route: 043
     Dates: start: 201701

REACTIONS (4)
  - Swelling face [Recovered/Resolved]
  - Paraesthesia [Not Recovered/Not Resolved]
  - Pruritus [Not Recovered/Not Resolved]
  - Malaise [Not Recovered/Not Resolved]

NARRATIVE: CASE EVENT DATE: 201701
